FAERS Safety Report 5446653-0 (Version None)
Quarter: 2007Q3

REPORT INFORMATION
  Report Type: 
  Country: None (occurrence: None)
  Receive Date: 20070907
  Receipt Date: 20070905
  Transmission Date: 20080115
  Serious: Yes (Hospitalization)
  Sender: FDA-Public Use
  Company Number: US-SHR-US-2006-035352

PATIENT
  Age: 45 Year
  Sex: Female
  Weight: 81.633 kg

DRUGS (3)
  1. BETASERON [Suspect]
     Indication: RELAPSING-REMITTING MULTIPLE SCLEROSIS
     Dosage: 9.6 MIU, UNK
     Route: 058
  2. BETASERON [Suspect]
     Dates: start: 20030807, end: 20050402
  3. BETASERON [Suspect]
     Dosage: 8 MIU, EVERY 2D
     Route: 058
     Dates: start: 20050905, end: 20061001

REACTIONS (3)
  - DIPLOPIA [None]
  - MULTIPLE SCLEROSIS [None]
  - NAUSEA [None]
